FAERS Safety Report 10168632 (Version 1)
Quarter: 2014Q2

REPORT INFORMATION
  Report Type: Spontaneous
  Country: US (occurrence: US)
  Receive Date: 20140513
  Receipt Date: 20140513
  Transmission Date: 20141212
  Serious: No
  Sender: FDA-Public Use
  Company Number: US-B.I. PHARMACEUTICALS,INC./RIDGEFIELD-2014-BI-20036BP

PATIENT
  Age: 76 Year
  Sex: Male
  Weight: 66 kg

DRUGS (4)
  1. SPIRIVA [Suspect]
     Indication: CHRONIC OBSTRUCTIVE PULMONARY DISEASE
     Dosage: 18 MCG
     Route: 048
  2. SPIRIVA [Suspect]
     Dosage: 18 MCG
     Route: 055
  3. PROAIR [Concomitant]
     Dosage: FORMULATION: INHALATION SPRAY
     Route: 055
  4. NEBULIZER [Concomitant]
     Dosage: FORMULATION: INHALATION SPRAY
     Route: 055

REACTIONS (3)
  - Asthenia [Not Recovered/Not Resolved]
  - Tremor [Not Recovered/Not Resolved]
  - Incorrect route of drug administration [Recovered/Resolved]
